FAERS Safety Report 8975306 (Version 2)
Quarter: 2013Q1

REPORT INFORMATION
  Report Type: Spontaneous
  Country: BR (occurrence: BR)
  Receive Date: 20121219
  Receipt Date: 20130118
  Transmission Date: 20140127
  Serious: Yes (Hospitalization, Other)
  Sender: FDA-Public Use
  Company Number: PHHY2012BR116615

PATIENT
  Age: 74 Year
  Sex: Female

DRUGS (3)
  1. DIOVAN AMLO FIX [Suspect]
     Indication: BLOOD PRESSURE
     Dosage: 1 DF, (320 MG VALS/ 5 MG AMLO) DAILY
  2. DIOVAN AMLO FIX [Suspect]
     Dosage: 1 DF, (320 MG VALS/ 12 MG AMLO)
  3. NEBILET [Suspect]

REACTIONS (4)
  - Acute myocardial infarction [Recovered/Resolved]
  - Device related infection [Recovered/Resolved]
  - Blood pressure increased [Recovered/Resolved]
  - Heart rate increased [Recovered/Resolved]
